FAERS Safety Report 4535219-2 (Version None)
Quarter: 2004Q4

REPORT INFORMATION
  Report Type: 
  Country: None (occurrence: None)
  Receive Date: 20041214
  Receipt Date: 20041008
  Transmission Date: 20050328
  Serious: No
  Sender: FDA-Public Use
  Company Number: 2004238223US

PATIENT
  Sex: Female
  Weight: 66.2 kg

DRUGS (4)
  1. BEXTRA [Suspect]
     Indication: POLYMYALGIA
     Dosage: 10 MG, QD
     Dates: start: 20041007
  2. PREDNISONE [Concomitant]
  3. PRILOSEC [Concomitant]
  4. MULTIVITAMIN [Concomitant]

REACTIONS (5)
  - ABDOMINAL DISTENSION [None]
  - FLUSHING [None]
  - INCONTINENCE [None]
  - SENSITIVITY OF TEETH [None]
  - SWELLING [None]
